FAERS Safety Report 7179370-X (Version None)
Quarter: 2010Q4

REPORT INFORMATION
  Report Type: 
  Country: None (occurrence: None)
  Receive Date: 20101221
  Receipt Date: 20101207
  Transmission Date: 20110411
  Serious: Yes (Other)
  Sender: FDA-Public Use
  Company Number: JP-SANOFI-AVENTIS-2010SA074326

PATIENT
  Age: 60 Year
  Sex: Male
  Weight: 46 kg

DRUGS (13)
  1. DRONEDARONE HCL [Suspect]
     Indication: ATRIAL FIBRILLATION
     Route: 048
     Dates: start: 20101126, end: 20101203
  2. ASPIRIN [Concomitant]
     Route: 048
     Dates: start: 20040521
  3. TORSEMIDE [Concomitant]
     Indication: CARDIAC FAILURE
     Route: 048
     Dates: start: 20100921, end: 20101206
  4. TENORMIN [Concomitant]
     Indication: SUPRAVENTRICULAR TACHYCARDIA
     Route: 048
     Dates: start: 20061109
  5. GASMOTIN [Concomitant]
     Dates: start: 20100825
  6. METHYCOBAL [Concomitant]
     Indication: CERVICAL MYELOPATHY
     Dates: start: 20060629
  7. SELBEX [Concomitant]
     Dates: start: 20071116
  8. PRORENAL [Concomitant]
     Indication: CERVICAL MYELOPATHY
     Dates: start: 20060724
  9. BIO THREE [Concomitant]
     Dates: start: 20101128, end: 20101129
  10. LAC B [Concomitant]
     Indication: COLITIS
     Dates: start: 20101129, end: 20101130
  11. LOXONIN [Concomitant]
     Dates: start: 20101129, end: 20101130
  12. PHELLOBERIN A [Concomitant]
     Dates: start: 20101129, end: 20101130
  13. ACETAMINOPHEN W/CAFF./PROMETHAZINE/SALICYLAM. [Concomitant]
     Dates: start: 20101129, end: 20101130

REACTIONS (1)
  - CARDIAC FAILURE ACUTE [None]
